FAERS Safety Report 8780018 (Version 1)
Quarter: 2012Q4

REPORT INFORMATION
  Report Type: Report from Study
  Country: US (occurrence: US)
  Receive Date: 20120912
  Receipt Date: 20120912
  Transmission Date: 20130627
  Serious: No
  Sender: FDA-Public Use
  Company Number: US-VERTEX PHARMACEUTICAL INC.-AE-2012-005358

PATIENT
  Age: 49 Year
  Sex: Male
  Weight: 185 kg

DRUGS (6)
  1. INCIVEK [Suspect]
     Indication: HEPATITIS C
     Route: 048
     Dates: start: 20120324
  2. RIBAPACK [Concomitant]
     Indication: HEPATITIS C
     Route: 048
     Dates: start: 20120324
  3. PEGASYS [Concomitant]
     Indication: HEPATITIS C
     Route: 058
     Dates: start: 20120324
  4. XANAX [Concomitant]
  5. MULTIVITAMIN [Concomitant]
  6. CLOBETASOL [Concomitant]

REACTIONS (4)
  - Insomnia [Unknown]
  - Dry eye [Not Recovered/Not Resolved]
  - Pruritus [Unknown]
  - Rash papular [Unknown]
